FAERS Safety Report 6219612-8 (Version None)
Quarter: 2009Q2

REPORT INFORMATION
  Report Type: 
  Country: None (occurrence: None)
  Receive Date: 20090609
  Receipt Date: 20090428
  Transmission Date: 20091009
  Serious: Yes (Death)
  Sender: FDA-Public Use
  Company Number: PHEH2009US05789

PATIENT
  Sex: Male
  Weight: 82 kg

DRUGS (1)
  1. EXJADE [Suspect]
     Dosage: 875 MG, QD
     Route: 048
     Dates: start: 20081003

REACTIONS (1)
  - DEATH [None]
